FAERS Safety Report 7135018-1 (Version None)
Quarter: 2010Q4

REPORT INFORMATION
  Report Type: 
  Country: None (occurrence: None)
  Receive Date: 20101203
  Receipt Date: 20101126
  Transmission Date: 20110411
  Serious: Yes (Hospitalization)
  Sender: FDA-Public Use
  Company Number: ES-MERCK-1011ESP00031

PATIENT
  Age: 75 Year

DRUGS (1)
  1. SINGULAIR [Suspect]
     Route: 048
     Dates: end: 20090101

REACTIONS (2)
  - CHRONIC OBSTRUCTIVE PULMONARY DISEASE [None]
  - PARKINSON'S DISEASE [None]
